FAERS Safety Report 13989494 (Version 2)
Quarter: 2025Q2

REPORT INFORMATION
  Report Type: Report from Study
  Country: US (occurrence: US)
  Receive Date: 20170920
  Receipt Date: 20250430
  Transmission Date: 20250716
  Serious: Yes (Other)
  Sender: AMGEN
  Company Number: US-AMGEN-USASL2017140666

PATIENT
  Sex: Male

DRUGS (8)
  1. ENBREL [Suspect]
     Active Substance: ETANERCEPT
     Indication: Rheumatoid arthritis
     Dosage: 50 MILLIGRAM, QWK
     Route: 065
     Dates: end: 2017
  2. PREDNISONE [Suspect]
     Active Substance: PREDNISONE
     Indication: Product used for unknown indication
     Route: 048
     Dates: start: 20241219
  3. METHOTREXATE SODIUM [Concomitant]
     Active Substance: METHOTREXATE SODIUM
  4. PLAQUENIL [Concomitant]
     Active Substance: HYDROXYCHLOROQUINE SULFATE
  5. FOLIC ACID [Concomitant]
     Active Substance: FOLIC ACID
     Dates: start: 20201018
  6. HYDROXYCHLOROQUINE [Concomitant]
     Active Substance: HYDROXYCHLOROQUINE
  7. IBUPROFEN [Concomitant]
     Active Substance: IBUPROFEN
  8. ELIGARD [Concomitant]
     Active Substance: LEUPROLIDE ACETATE

REACTIONS (7)
  - Prostate cancer [Unknown]
  - Joint dislocation [Unknown]
  - Shoulder arthroplasty [Unknown]
  - Rheumatoid arthritis [Unknown]
  - Spinal cord injury thoracic [Unknown]
  - Artificial urinary sphincter implant [Unknown]
  - Ligament rupture [Unknown]

NARRATIVE: CASE EVENT DATE: 20180101
